FAERS Safety Report 23956684 (Version 3)
Quarter: 2024Q2

REPORT INFORMATION
  Report Type: Spontaneous
  Country: PL (occurrence: PL)
  Receive Date: 20240610
  Receipt Date: 20240624
  Transmission Date: 20240716
  Serious: Yes (Other)
  Sender: FDA-Public Use
  Company Number: PL-TEVA-VS-3197816

PATIENT
  Age: 42 Year
  Sex: Female

DRUGS (20)
  1. TOPAMAX [Suspect]
     Active Substance: TOPIRAMATE
     Indication: Migraine
     Route: 048
  2. AMITRIPTYLINE [Suspect]
     Active Substance: AMITRIPTYLINE
     Indication: Migraine
     Route: 065
  3. OXITRIPTAN [Suspect]
     Active Substance: OXITRIPTAN
     Indication: Headache
     Route: 065
  4. VALPROATE SODIUM [Suspect]
     Active Substance: VALPROATE SODIUM
     Indication: Migraine
     Dosage: 2 X 500MG
     Route: 065
  5. ZOLMITRIPTAN [Concomitant]
     Active Substance: ZOLMITRIPTAN
     Indication: Headache
     Route: 065
  6. SOLPADEINE [CAFFEINE;CODEINE PHOSPHATE;PARACETAMOL] [Concomitant]
     Indication: Headache
     Dosage: 2 TABLETS
     Route: 065
  7. BOTULINUM TOXIN TYPE A [Concomitant]
     Active Substance: BOTULINUM TOXIN TYPE A
     Indication: Headache
     Route: 065
  8. SUMATRIPTAN [Concomitant]
     Active Substance: SUMATRIPTAN
     Indication: Headache
     Route: 065
  9. DIVASCAN [Concomitant]
     Indication: Headache
     Dosage: 3 X 2 TAB
     Route: 065
  10. DIVASCAN [Concomitant]
     Dosage: 3 X 1 TAB
     Route: 065
  11. SUMAMIGREN [Concomitant]
     Indication: Headache
     Route: 065
  12. AMITRIPTYLINE [Concomitant]
     Active Substance: AMITRIPTYLINE
     Indication: Headache
     Route: 065
  13. MAXALT [Concomitant]
     Active Substance: RIZATRIPTAN BENZOATE
     Indication: Headache
     Route: 065
  14. KETOPROFEN [Concomitant]
     Active Substance: KETOPROFEN
     Indication: Headache
     Route: 065
  15. PROPRANOLOL [Concomitant]
     Active Substance: PROPRANOLOL HYDROCHLORIDE
     Indication: Heart rate
     Dosage: 2 X 10MG
     Route: 065
  16. PROPRANOLOL [Concomitant]
     Active Substance: PROPRANOLOL HYDROCHLORIDE
     Indication: Blood pressure measurement
  17. RELPAX [Concomitant]
     Active Substance: ELETRIPTAN HYDROBROMIDE
     Indication: Headache
     Route: 065
  18. NAPROXEN [Concomitant]
     Active Substance: NAPROXEN
     Indication: Headache
     Route: 065
  19. FLUNARIZINE [Concomitant]
     Active Substance: FLUNARIZINE
     Indication: Headache
     Route: 065
  20. OPIPRAMOL HYDROCHLORIDE [Concomitant]
     Active Substance: OPIPRAMOL HYDROCHLORIDE
     Indication: Headache
     Dosage: 3 X 25MG , LATER THE DOSE WAS INCREASED TO 3 X 1 TAB
     Route: 065

REACTIONS (11)
  - Drug dependence [Unknown]
  - Dry mouth [Unknown]
  - Drug ineffective [Unknown]
  - Nausea [Unknown]
  - Photophobia [Unknown]
  - Off label use [Unknown]
  - Constipation [Unknown]
  - Drug intolerance [Unknown]
  - Alopecia [Unknown]
  - Parosmia [Unknown]
  - Hyperacusis [Unknown]

NARRATIVE: CASE EVENT DATE: 20120101
